FAERS Safety Report 8113503-3 (Version None)
Quarter: 2012Q1

REPORT INFORMATION
  Report Type: 
  Country: None (occurrence: None)
  Receive Date: 20120203
  Receipt Date: 20120203
  Transmission Date: 20120608
  Serious: Yes (Hospitalization, Other)
  Sender: FDA-Public Use
  Company Number: US-PFIZER INC-2012016337

PATIENT
  Sex: Female
  Weight: 65.76 kg

DRUGS (2)
  1. GLUCOTROL XL [Suspect]
     Indication: DIABETES MELLITUS
     Dosage: 10MG IN MORNING AND 5MG AT NIGHT
     Route: 048
     Dates: start: 20000101, end: 20111117
  2. CELECOXIB [Suspect]
     Indication: ARTHRITIS
     Dosage: UNK, DAILY
     Route: 048
     Dates: start: 19950101, end: 20111117

REACTIONS (4)
  - HIP FRACTURE [None]
  - WRIST FRACTURE [None]
  - UPPER LIMB FRACTURE [None]
  - FALL [None]
